FAERS Safety Report 5372959-X (Version None)
Quarter: 2007Q2

REPORT INFORMATION
  Report Type: 
  Country: None (occurrence: None)
  Receive Date: 20070626
  Receipt Date: 20070614
  Transmission Date: 20071010
  Serious: Yes (Death, Life-Threatening, Hospitalization, Other)
  Sender: FDA-Public Use
  Company Number: 07062150

PATIENT
  Age: 49 Year
  Sex: Male

DRUGS (2)
  1. LISINOPRIL [Suspect]
     Indication: HYPERTENSION
     Dosage: 10MG,QD, ORAL
     Route: 048
  2. HYDROCHLOROTHIAZIDE [Suspect]
     Indication: HYPERTENSION
     Dosage: 12.5 MG, QD,ORAL
     Route: 048

REACTIONS (5)
  - ACUTE RESPIRATORY DISTRESS SYNDROME [None]
  - BLOOD CREATINE INCREASED [None]
  - HAEMOGLOBIN DECREASED [None]
  - MULTI-ORGAN FAILURE [None]
  - PANCREATITIS NECROTISING [None]
